FAERS Safety Report 23358722 (Version 1)
Quarter: 2024Q1

REPORT INFORMATION
  Report Type: Spontaneous
  Country: AT (occurrence: AT)
  Receive Date: 20240102
  Receipt Date: 20240102
  Transmission Date: 20240410
  Serious: Yes (Other)
  Sender: FDA-Public Use
  Company Number: None

PATIENT
  Age: 35 Year
  Sex: Male

DRUGS (1)
  1. ALPRAZOLAM [Suspect]
     Active Substance: ALPRAZOLAM
     Indication: Product used for unknown indication
     Dosage: UNK
     Route: 065
     Dates: start: 20231129

REACTIONS (12)
  - Paraesthesia [Unknown]
  - Bradyphrenia [Unknown]
  - Tension [Unknown]
  - Feeling hot [Unknown]
  - Restlessness [Unknown]
  - Crying [Unknown]
  - Panic attack [Unknown]
  - Sexual dysfunction [Unknown]
  - Anxiety [Unknown]
  - Decreased appetite [Unknown]
  - Middle insomnia [Unknown]
  - Tremor [Unknown]

NARRATIVE: CASE EVENT DATE: 20231210
